FAERS Safety Report 5581793-7 (Version None)
Quarter: 2008Q1

REPORT INFORMATION
  Report Type: 
  Country: None (occurrence: None)
  Receive Date: 20080104
  Receipt Date: 20071224
  Transmission Date: 20080703
  Serious: Yes (Other)
  Sender: FDA-Public Use
  Company Number: US-PFIZER INC-2007097056

PATIENT
  Sex: Female
  Weight: 56.818 kg

DRUGS (7)
  1. LYRICA [Suspect]
     Indication: FIBROMYALGIA
  2. XANAX [Concomitant]
  3. FIORINAL W/CODEINE [Concomitant]
  4. VICODIN [Concomitant]
  5. AMITRIPTYLINE HCL [Concomitant]
  6. LOVASTATIN [Concomitant]
  7. OMEGA 3 [Concomitant]

REACTIONS (2)
  - FIBROMYALGIA [None]
  - SOMNOLENCE [None]
